FAERS Safety Report 9472560 (Version 1)
Quarter: 2013Q3

REPORT INFORMATION
  Report Type: Spontaneous
  Country: US (occurrence: US)
  Receive Date: 20130823
  Receipt Date: 20130823
  Transmission Date: 20140515
  Serious: Yes (Other)
  Sender: FDA-Public Use
  Company Number: US-UCBSA-095758

PATIENT
  Sex: Female

DRUGS (4)
  1. VIMPAT [Suspect]
  2. KEPPRA [Suspect]
  3. LAMICTAL [Concomitant]
     Dosage: 400 MG
  4. LAMICTAL [Concomitant]
     Dosage: INCREASED DOSE

REACTIONS (2)
  - Convulsion [Unknown]
  - Nausea [Unknown]
